FAERS Safety Report 20862023 (Version 1)
Quarter: 2022Q2

REPORT INFORMATION
  Report Type: Spontaneous
  Country: US (occurrence: None)
  Receive Date: 20220521
  Receipt Date: 20220521
  Transmission Date: 20220721
  Serious: Yes (Other)
  Sender: FDA-Public Use
  Company Number: None

PATIENT
  Age: 56 Year
  Sex: Male
  Weight: 119.25 kg

DRUGS (2)
  1. XARELTO [Suspect]
     Active Substance: RIVAROXABAN
     Indication: Atrial fibrillation
  2. SOTALOL [Concomitant]
     Active Substance: SOTALOL

REACTIONS (3)
  - Weight increased [None]
  - Fatigue [None]
  - Initial insomnia [None]

NARRATIVE: CASE EVENT DATE: 20220201
